FAERS Safety Report 8198342-X (Version None)
Quarter: 2012Q1

REPORT INFORMATION
  Report Type: 
  Country: None (occurrence: None)
  Receive Date: 20120309
  Receipt Date: 20120305
  Transmission Date: 20120608
  Serious: Yes (Disabling)
  Sender: FDA-Public Use
  Company Number: PHHY2012IT019764

PATIENT
  Sex: Male

DRUGS (4)
  1. ZOMETA [Suspect]
     Indication: PROSTATE CANCER METASTATIC
     Dosage: 4 MG
     Route: 042
     Dates: start: 20100901, end: 20111001
  2. ABIRATENONE [Concomitant]
     Dosage: UNK
     Dates: start: 20110801
  3. ARIXTRA [Concomitant]
     Dosage: UNK
     Dates: start: 20090401
  4. PREDNISONE TAB [Concomitant]
     Dosage: UNK
     Dates: start: 20110801

REACTIONS (4)
  - FISTULA [None]
  - PRIMARY SEQUESTRUM [None]
  - OSTEONECROSIS OF JAW [None]
  - PURULENCE [None]
